FAERS Safety Report 11741709 (Version 1)
Quarter: 2015Q4

REPORT INFORMATION
  Report Type: Spontaneous
  Country: GB (occurrence: GB)
  Receive Date: 20151116
  Receipt Date: 20151116
  Transmission Date: 20160304
  Serious: Yes (Other)
  Sender: FDA-Public Use
  Company Number: GB-JNJFOC-20151106813

PATIENT
  Age: 56 Year
  Sex: Male

DRUGS (3)
  1. IBUPROFEN. [Suspect]
     Active Substance: IBUPROFEN
     Indication: FATIGUE
     Route: 065
  2. IBUPROFEN. [Suspect]
     Active Substance: IBUPROFEN
     Indication: DYSPNOEA
     Route: 065
  3. PROTON PUMP INHIBITORS [Suspect]
     Active Substance: UNSPECIFIED INGREDIENT
     Indication: PRODUCT USED FOR UNKNOWN INDICATION
     Route: 065

REACTIONS (15)
  - Pyrexia [None]
  - Streptococcus test positive [None]
  - Cardiac valve vegetation [None]
  - Condition aggravated [None]
  - Hepatomegaly [None]
  - Pancytopenia [Recovered/Resolved]
  - Sinus tachycardia [None]
  - Vasculitic rash [None]
  - Myelodysplastic syndrome [None]
  - Skin lesion [None]
  - Mitral valve incompetence [None]
  - Oedema [None]
  - Ventricular hyperkinesia [None]
  - Product use issue [Recovered/Resolved]
  - Hypersplenism [None]

NARRATIVE: CASE EVENT DATE: 201401
